FAERS Safety Report 6825577-8 (Version None)
Quarter: 2010Q3

REPORT INFORMATION
  Report Type: 
  Country: None (occurrence: None)
  Receive Date: 20100708
  Receipt Date: 20070224
  Transmission Date: 20110219
  Serious: No
  Sender: FDA-Public Use
  Company Number: US-PFIZER INC-2007002373

PATIENT
  Sex: Female
  Weight: 95.25 kg

DRUGS (3)
  1. CHANTIX [Suspect]
     Indication: SMOKING CESSATION THERAPY
     Route: 048
     Dates: start: 20070102
  2. CLONAZEPAM [Concomitant]
     Indication: ANXIETY
  3. LOVASTATIN [Concomitant]

REACTIONS (1)
  - AGITATION [None]
